FAERS Safety Report 4859938-3 (Version None)
Quarter: 2005Q4

REPORT INFORMATION
  Report Type: 
  Country: None (occurrence: None)
  Receive Date: 20051215
  Receipt Date: 20051207
  Transmission Date: 20060501
  Serious: Yes (Disabling)
  Sender: FDA-Public Use
  Company Number: UKP05000408

PATIENT
  Age: 77 Year
  Sex: Female
  Weight: 80 kg

DRUGS (2)
  1. ACTONEL [Suspect]
     Indication: OSTEOPOROSIS
     Dosage: 35 MG, ORAL
     Route: 048
     Dates: start: 20050401, end: 20051101
  2. PREDNISOLONE (PREDNISOLONE) [Concomitant]

REACTIONS (4)
  - CONDITION AGGRAVATED [None]
  - HEADACHE [None]
  - MUSCULOSKELETAL STIFFNESS [None]
  - POLYMYALGIA RHEUMATICA [None]
